FAERS Safety Report 24720348 (Version 6)
Quarter: 2025Q2

REPORT INFORMATION
  Report Type: Report from Study
  Country: FR (occurrence: FR)
  Receive Date: 20241211
  Receipt Date: 20250617
  Transmission Date: 20250717
  Serious: Yes (Hospitalization)
  Sender: SANOFI AVENTIS
  Company Number: FR-SA-2024SA361405

PATIENT
  Age: 77 Year
  Sex: Female
  Weight: 85 kg

DRUGS (85)
  1. ISATUXIMAB [Suspect]
     Active Substance: ISATUXIMAB
     Indication: Plasma cell myeloma refractory
     Dosage: 800 MG, QW
     Dates: start: 20221109, end: 20221109
  2. ISATUXIMAB [Suspect]
     Active Substance: ISATUXIMAB
     Dosage: 800 MG, QW
     Dates: start: 20221115, end: 20221115
  3. ISATUXIMAB [Suspect]
     Active Substance: ISATUXIMAB
     Dosage: 800 MG, QW
     Dates: start: 20221121, end: 20221121
  4. ISATUXIMAB [Suspect]
     Active Substance: ISATUXIMAB
     Dosage: 800 MG, QW
     Dates: start: 20221129, end: 20221129
  5. ISATUXIMAB [Suspect]
     Active Substance: ISATUXIMAB
     Dosage: 800 MG, QW
     Dates: start: 20221206, end: 20221206
  6. ISATUXIMAB [Suspect]
     Active Substance: ISATUXIMAB
     Dosage: 800 MG, QW
     Dates: start: 20221219, end: 20221219
  7. ISATUXIMAB [Suspect]
     Active Substance: ISATUXIMAB
     Dosage: 800 MG, QW
     Dates: start: 20230102, end: 20230102
  8. ISATUXIMAB [Suspect]
     Active Substance: ISATUXIMAB
     Dosage: 800 MG, QW
     Dates: start: 20230116, end: 20230116
  9. ISATUXIMAB [Suspect]
     Active Substance: ISATUXIMAB
     Dosage: 800 MG, QOW
     Dates: start: 20230130, end: 20230130
  10. ISATUXIMAB [Suspect]
     Active Substance: ISATUXIMAB
     Dosage: 800 MG, QOW
     Dates: start: 20230213, end: 20230213
  11. ISATUXIMAB [Suspect]
     Active Substance: ISATUXIMAB
     Dosage: 830 MG, QOW
     Dates: start: 20230227, end: 20230313
  12. ISATUXIMAB [Suspect]
     Active Substance: ISATUXIMAB
     Dosage: 830 MG, QW
     Dates: start: 20230327, end: 20230411
  13. ISATUXIMAB [Suspect]
     Active Substance: ISATUXIMAB
     Dosage: 830 MG, QOW
     Dates: start: 20230424, end: 20230509
  14. ISATUXIMAB [Suspect]
     Active Substance: ISATUXIMAB
     Dosage: 830 MG, QOW
     Dates: start: 20230522, end: 20230605
  15. ISATUXIMAB [Suspect]
     Active Substance: ISATUXIMAB
     Dosage: 830 MG, QOW
     Dates: start: 20230619, end: 20230703
  16. ISATUXIMAB [Suspect]
     Active Substance: ISATUXIMAB
     Dosage: 830 MG, QOW
     Dates: start: 20230814, end: 20230828
  17. ISATUXIMAB [Suspect]
     Active Substance: ISATUXIMAB
     Dosage: 830 MG, QOW
     Dates: start: 20230911, end: 20230925
  18. ISATUXIMAB [Suspect]
     Active Substance: ISATUXIMAB
     Dosage: 830 MG, QOW
     Dates: start: 20231009, end: 20231023
  19. ISATUXIMAB [Suspect]
     Active Substance: ISATUXIMAB
     Dates: start: 20231106, end: 20231106
  20. ISATUXIMAB [Suspect]
     Active Substance: ISATUXIMAB
     Dosage: 870 MG, QOW
     Dates: start: 20231127, end: 20231127
  21. ISATUXIMAB [Suspect]
     Active Substance: ISATUXIMAB
     Dates: start: 20231211, end: 20231211
  22. ISATUXIMAB [Suspect]
     Active Substance: ISATUXIMAB
     Dosage: 870 MG, QOW
     Dates: start: 20240206, end: 20240220
  23. ISATUXIMAB [Suspect]
     Active Substance: ISATUXIMAB
     Dosage: 870 MG, QOW
     Dates: start: 20240305, end: 20240318
  24. ISATUXIMAB [Suspect]
     Active Substance: ISATUXIMAB
     Dosage: 870 MG, QOW
     Dates: start: 20240405, end: 20240419
  25. ISATUXIMAB [Suspect]
     Active Substance: ISATUXIMAB
     Dosage: 870 MG, QOW
     Dates: start: 20240502, end: 20240516
  26. ISATUXIMAB [Suspect]
     Active Substance: ISATUXIMAB
     Dosage: 870 MG, QOW
     Dates: start: 20240530, end: 20240613
  27. ISATUXIMAB [Suspect]
     Active Substance: ISATUXIMAB
     Dosage: 870 MG, QOW
     Dates: start: 20240627, end: 20240711
  28. ISATUXIMAB [Suspect]
     Active Substance: ISATUXIMAB
     Dates: start: 20240725, end: 20240725
  29. POMALIDOMIDE [Suspect]
     Active Substance: POMALIDOMIDE
     Indication: Plasma cell myeloma refractory
     Dosage: 4 MG, QD
     Dates: start: 20221109, end: 20221122
  30. POMALIDOMIDE [Suspect]
     Active Substance: POMALIDOMIDE
     Dosage: 4 MG, QD
     Dates: start: 20221206, end: 20221226
  31. POMALIDOMIDE [Suspect]
     Active Substance: POMALIDOMIDE
     Dosage: 4 MG, QD
     Dates: start: 20230102, end: 20230130
  32. POMALIDOMIDE [Suspect]
     Active Substance: POMALIDOMIDE
     Dosage: 4 MG, QD
     Dates: start: 20230206, end: 20230219
  33. POMALIDOMIDE [Suspect]
     Active Substance: POMALIDOMIDE
     Dosage: 4 MG, QD
     Dates: start: 20230227, end: 20230319
  34. POMALIDOMIDE [Suspect]
     Active Substance: POMALIDOMIDE
     Dosage: 4 MG, QD
     Dates: start: 20230327, end: 20230416
  35. POMALIDOMIDE [Suspect]
     Active Substance: POMALIDOMIDE
     Dosage: 4 MG, QOW
     Dates: start: 20230424, end: 20230514
  36. POMALIDOMIDE [Suspect]
     Active Substance: POMALIDOMIDE
     Dosage: 4 MG, QD
     Dates: start: 20230522, end: 20230611
  37. POMALIDOMIDE [Suspect]
     Active Substance: POMALIDOMIDE
     Dosage: 4 MG, QD
     Dates: start: 20230619, end: 20230709
  38. POMALIDOMIDE [Suspect]
     Active Substance: POMALIDOMIDE
     Dosage: 3 MG, QD
     Dates: start: 20230717, end: 20230806
  39. POMALIDOMIDE [Suspect]
     Active Substance: POMALIDOMIDE
     Dosage: 4 MG, QD
     Dates: start: 20230814, end: 20240903
  40. POMALIDOMIDE [Suspect]
     Active Substance: POMALIDOMIDE
     Dosage: 3 MG, QD
     Dates: start: 20230911, end: 20230917
  41. POMALIDOMIDE [Suspect]
     Active Substance: POMALIDOMIDE
     Dosage: 3 MG, QD
     Dates: start: 20230925, end: 20231001
  42. POMALIDOMIDE [Suspect]
     Active Substance: POMALIDOMIDE
     Dosage: 3 MG, QD
     Dates: start: 20231009, end: 20231029
  43. POMALIDOMIDE [Suspect]
     Active Substance: POMALIDOMIDE
     Dosage: 3 MG, QD
     Dates: start: 20231106, end: 20231119
  44. POMALIDOMIDE [Suspect]
     Active Substance: POMALIDOMIDE
     Dosage: 3 MG, QD
     Dates: start: 20240109, end: 20240129
  45. POMALIDOMIDE [Suspect]
     Active Substance: POMALIDOMIDE
     Dosage: 3 MG, QD
     Dates: start: 20240206, end: 20240226
  46. POMALIDOMIDE [Suspect]
     Active Substance: POMALIDOMIDE
     Dosage: 3 MG, QD
     Dates: start: 20240305, end: 20240325
  47. POMALIDOMIDE [Suspect]
     Active Substance: POMALIDOMIDE
     Dosage: 3 MG, QD
     Dates: start: 20240405, end: 20240425
  48. POMALIDOMIDE [Suspect]
     Active Substance: POMALIDOMIDE
     Dosage: 3 MG, QD
     Dates: start: 20240502, end: 20240522
  49. POMALIDOMIDE [Suspect]
     Active Substance: POMALIDOMIDE
     Dosage: 3 MG, QD
     Dates: start: 20240530, end: 20240619
  50. POMALIDOMIDE [Suspect]
     Active Substance: POMALIDOMIDE
     Dosage: 3 MG, QD
     Dates: start: 20240627, end: 20240717
  51. POMALIDOMIDE [Suspect]
     Active Substance: POMALIDOMIDE
     Dosage: 3 MG, QD
     Dates: start: 20240725, end: 20240814
  52. DEXAMETHASONE [Suspect]
     Active Substance: DEXAMETHASONE
     Indication: Plasma cell myeloma refractory
     Dosage: 20 MG, QW
     Dates: start: 20221109, end: 20221109
  53. DEXAMETHASONE [Suspect]
     Active Substance: DEXAMETHASONE
     Dosage: 20 MG, QW
     Dates: start: 20221115, end: 20221115
  54. DEXAMETHASONE [Suspect]
     Active Substance: DEXAMETHASONE
     Dosage: 20 MG, QW
     Dates: start: 20221121, end: 20221121
  55. DEXAMETHASONE [Suspect]
     Active Substance: DEXAMETHASONE
     Dosage: 20 MG, QW
     Dates: start: 20221129, end: 20221129
  56. DEXAMETHASONE [Suspect]
     Active Substance: DEXAMETHASONE
     Dosage: 10 MG, QW
     Dates: start: 20221206, end: 20221206
  57. DEXAMETHASONE [Suspect]
     Active Substance: DEXAMETHASONE
     Dosage: 10 MG, QOW
     Dates: start: 20221219, end: 20221219
  58. DEXAMETHASONE [Suspect]
     Active Substance: DEXAMETHASONE
     Dosage: 10 MG, QOW
     Dates: start: 20230102, end: 20230102
  59. DEXAMETHASONE [Suspect]
     Active Substance: DEXAMETHASONE
     Dosage: 10 MG, QOW
     Dates: start: 20230116, end: 20230116
  60. DEXAMETHASONE [Suspect]
     Active Substance: DEXAMETHASONE
     Dosage: 10 MG, QOW
     Dates: start: 20230130, end: 20230130
  61. DEXAMETHASONE [Suspect]
     Active Substance: DEXAMETHASONE
     Dosage: 10 MG, QOW
     Dates: start: 20230213, end: 20230213
  62. DEXAMETHASONE [Suspect]
     Active Substance: DEXAMETHASONE
     Dosage: 10 MG, QOW
     Dates: start: 20230227, end: 20230313
  63. DEXAMETHASONE [Suspect]
     Active Substance: DEXAMETHASONE
     Dosage: 10 MG, QOW
     Dates: start: 20230327, end: 20230411
  64. DEXAMETHASONE [Suspect]
     Active Substance: DEXAMETHASONE
     Dosage: 10 MG, QOW
     Dates: start: 20230424, end: 20230509
  65. DEXAMETHASONE [Suspect]
     Active Substance: DEXAMETHASONE
     Dosage: 10 MG, QOW
     Dates: start: 20230522, end: 20230605
  66. DEXAMETHASONE [Suspect]
     Active Substance: DEXAMETHASONE
     Dosage: 10 MG, QOW
     Dates: start: 20230619, end: 20230703
  67. DEXAMETHASONE [Suspect]
     Active Substance: DEXAMETHASONE
     Dosage: 10 MG, QOW
     Dates: start: 20230717, end: 20230731
  68. DEXAMETHASONE [Suspect]
     Active Substance: DEXAMETHASONE
     Dosage: 10 MG, QOW
     Dates: start: 20230717, end: 20230731
  69. DEXAMETHASONE [Suspect]
     Active Substance: DEXAMETHASONE
     Dosage: 10 MG, QOW
     Dates: start: 20230814, end: 20230828
  70. DEXAMETHASONE [Suspect]
     Active Substance: DEXAMETHASONE
     Dosage: 10 MG, QOW
     Dates: start: 20230911, end: 20230925
  71. DEXAMETHASONE [Suspect]
     Active Substance: DEXAMETHASONE
     Dosage: 10 MG, QOW
     Dates: start: 20231009, end: 20231023
  72. DEXAMETHASONE [Suspect]
     Active Substance: DEXAMETHASONE
     Dates: start: 20231106, end: 20231106
  73. ZOPICLONE [Concomitant]
     Active Substance: ZOPICLONE
     Indication: Anxiety
  74. PRAZEPAM [Concomitant]
     Active Substance: PRAZEPAM
     Indication: Anxiety
  75. HYDROXYZINE HYDROCHLORIDE [Concomitant]
     Active Substance: HYDROXYZINE HYDROCHLORIDE
     Indication: Anxiety
  76. ELIQUIS [Concomitant]
     Active Substance: APIXABAN
     Indication: Prophylaxis
  77. POTASSIUM CHLORIDE [Concomitant]
     Active Substance: POTASSIUM CHLORIDE
     Indication: Prophylaxis
  78. VALACYCLOVIR HYDROCHLORIDE [Concomitant]
     Active Substance: VALACYCLOVIR HYDROCHLORIDE
     Indication: Prophylaxis
     Dates: start: 20221109
  79. ACETAMINOPHEN [Concomitant]
     Active Substance: ACETAMINOPHEN
     Indication: Prophylaxis
     Dates: start: 20221109
  80. POLARAMINE [Concomitant]
     Active Substance: DEXCHLORPHENIRAMINE MALEATE
     Indication: Prophylaxis
     Dates: start: 20221109
  81. RANITIDINE [Concomitant]
     Active Substance: RANITIDINE
     Indication: Prophylaxis
     Dates: start: 20221109
  82. CYANOCOBALAMIN [Concomitant]
     Active Substance: CYANOCOBALAMIN
     Dates: start: 20230424
  83. AMOXICILLIN [Concomitant]
     Active Substance: AMOXICILLIN
     Indication: Infection prophylaxis
     Dates: start: 20240220
  84. FOSFOMYCIN TROMETHAMINE [Concomitant]
     Active Substance: FOSFOMYCIN TROMETHAMINE
     Dates: start: 20240808, end: 20240812
  85. LAXATIF [Concomitant]
     Indication: Constipation prophylaxis
     Dates: start: 20240530

REACTIONS (3)
  - Postoperative wound infection [Recovered/Resolved]
  - Femur fracture [Recovered/Resolved]
  - Humerus fracture [Recovered/Resolved]

NARRATIVE: CASE EVENT DATE: 20240822
